FAERS Safety Report 18436183 (Version 3)
Quarter: 2020Q4

REPORT INFORMATION
  Report Type: Spontaneous
  Country: US (occurrence: US)
  Receive Date: 20201028
  Receipt Date: 20201209
  Transmission Date: 20210114
  Serious: No
  Sender: FDA-Public Use
  Company Number: US-ASTRAZENECA-2020SF35942

PATIENT
  Age: 81 Year
  Sex: Female

DRUGS (3)
  1. METOPROLOL. [Suspect]
     Active Substance: METOPROLOL
     Route: 065
  2. LISINOPRIL. [Concomitant]
     Active Substance: LISINOPRIL
  3. FARXIGA [Suspect]
     Active Substance: DAPAGLIFLOZIN PROPANEDIOL
     Indication: DIABETES MELLITUS
     Dosage: UNKNOWN
     Route: 048

REACTIONS (15)
  - Odynophagia [Unknown]
  - Tenderness [Unknown]
  - Mass [Unknown]
  - Rash [Recovered/Resolved]
  - Malaise [Recovered/Resolved]
  - Blood glucose increased [Not Recovered/Not Resolved]
  - Swelling face [Recovered/Resolved]
  - Ear discomfort [Unknown]
  - Pain [Unknown]
  - Facial discomfort [Unknown]
  - Rhinorrhoea [Unknown]
  - Abdominal discomfort [Recovered/Resolved]
  - Vomiting [Recovered/Resolved]
  - Fatigue [Recovered/Resolved]
  - Ear pain [Recovered/Resolved]
